FAERS Safety Report 6306338-5 (Version None)
Quarter: 2009Q3

REPORT INFORMATION
  Report Type: 
  Country: None (occurrence: None)
  Receive Date: 20090810
  Receipt Date: 20090729
  Transmission Date: 20100115
  Serious: Yes (Hospitalization)
  Sender: FDA-Public Use
  Company Number: 2008AL009834

PATIENT
  Age: 62 Year
  Sex: Male

DRUGS (37)
  1. DIGOXIN [Suspect]
     Dosage: 0.25MG, DAILY, PO
     Route: 048
     Dates: start: 20061102, end: 20071121
  2. CLOTRIM [Concomitant]
  3. LIPITOR [Concomitant]
  4. FLONASE [Concomitant]
  5. NEXIUM [Concomitant]
  6. CARVEDILOL [Concomitant]
  7. SINGULAIR [Concomitant]
  8. ENALAPRIL MALEATE [Concomitant]
  9. PROMETHAZINE [Concomitant]
  10. STRATTERA [Concomitant]
  11. PANTOPRAZOLE SODIUM [Concomitant]
  12. FLUTICASONE [Concomitant]
  13. COREG [Concomitant]
  14. ALBUTEROL [Concomitant]
  15. HYDROCORT [Concomitant]
  16. ALLEGRA [Concomitant]
  17. PRINIVIL [Concomitant]
  18. LISINOPRIL [Concomitant]
  19. METOPROLOL [Concomitant]
  20. DULCOLAX [Concomitant]
  21. AZTREONAM [Concomitant]
  22. LEVAQUIN [Concomitant]
  23. LOVENOX [Concomitant]
  24. CLONIDINE [Concomitant]
  25. PROCRIT [Concomitant]
  26. MULTI-VITAMIN [Concomitant]
  27. REGLAN [Concomitant]
  28. XOPENEX [Concomitant]
  29. ASCORBIC ACID [Concomitant]
  30. ARANCEP [Concomitant]
  31. PREVACID [Concomitant]
  32. ATARAX [Concomitant]
  33. ACIDOPHILUS [Concomitant]
  34. AVAPRO [Concomitant]
  35. AZITHROMYCIN [Concomitant]
  36. AMMONIUM [Concomitant]
  37. NASACORT [Concomitant]

REACTIONS (39)
  - ANOXIC ENCEPHALOPATHY [None]
  - APNOEA [None]
  - ATAXIA [None]
  - ATRIAL FIBRILLATION [None]
  - BALANCE DISORDER [None]
  - BRADYCARDIA [None]
  - BRAIN INJURY [None]
  - CARDIAC ARREST [None]
  - CARDIO-RESPIRATORY ARREST [None]
  - COGNITIVE DISORDER [None]
  - CONFUSIONAL STATE [None]
  - DIARRHOEA [None]
  - DISTURBANCE IN ATTENTION [None]
  - DRUG ERUPTION [None]
  - DYSPHAGIA [None]
  - DYSPNOEA [None]
  - FALL [None]
  - HYPERTENSION [None]
  - HYPOXIA [None]
  - INJURY [None]
  - LOSS OF CONSCIOUSNESS [None]
  - LUNG INFECTION PSEUDOMONAL [None]
  - MEMORY IMPAIRMENT [None]
  - MENTAL DISORDER [None]
  - NASOPHARYNGITIS [None]
  - NAUSEA [None]
  - OEDEMA PERIPHERAL [None]
  - PAIN [None]
  - PULSE ABSENT [None]
  - QUALITY OF LIFE DECREASED [None]
  - RESPIRATORY FAILURE [None]
  - STAPHYLOCOCCAL BACTERAEMIA [None]
  - TACHYCARDIA [None]
  - TRACHEOBRONCHITIS [None]
  - TUNNEL VISION [None]
  - URINARY TRACT INFECTION [None]
  - VENTRICULAR FIBRILLATION [None]
  - VENTRICULAR TACHYCARDIA [None]
  - VISUAL FIELD DEFECT [None]
